FAERS Safety Report 9322621 (Version 1)
Quarter: 2013Q2

REPORT INFORMATION
  Report Type: Spontaneous
  Country: GB (occurrence: GB)
  Receive Date: 20130531
  Receipt Date: 20130531
  Transmission Date: 20140414
  Serious: Yes (Hospitalization, Other)
  Sender: FDA-Public Use
  Company Number: GB-B.I. PHARMACEUTICALS,INC./RIDGEFIELD-2013-UK-01165UK

PATIENT
  Age: 72 Year
  Sex: Female
  Weight: 85 kg

DRUGS (9)
  1. TRAJENTA [Suspect]
     Indication: DIABETES MELLITUS
     Route: 048
     Dates: start: 20121228, end: 20130501
  2. CANDESARTAN [Concomitant]
     Dosage: 4 MG
     Route: 048
  3. DOXAZOSIN [Concomitant]
     Dosage: 4 MG
  4. FLUVASTATIN [Concomitant]
     Dosage: 40 MG
     Route: 048
  5. GAVISCON [Concomitant]
     Route: 048
  6. KETOPROFEN [Concomitant]
     Route: 061
  7. LANSOPRAZOLE [Concomitant]
     Dosage: 30 MG
     Route: 048
  8. METFORMIN [Concomitant]
     Dosage: 2000 MG
     Route: 048
  9. PARACETAMOL [Concomitant]
     Dosage: 4000 MG
     Route: 048

REACTIONS (2)
  - Hepatic function abnormal [Not Recovered/Not Resolved]
  - Liver function test abnormal [Not Recovered/Not Resolved]
